FAERS Safety Report 4978590-X (Version None)
Quarter: 2006Q2

REPORT INFORMATION
  Report Type: 
  Country: None (occurrence: None)
  Receive Date: 20060420
  Receipt Date: 20060414
  Transmission Date: 20061013
  Serious: Yes (Other)
  Sender: FDA-Public Use
  Company Number: US-MERCK-0604USA02775

PATIENT
  Sex: Female

DRUGS (2)
  1. VIOXX [Suspect]
     Indication: BACK PAIN
     Route: 048
     Dates: end: 20010101
  2. VIOXX [Suspect]
     Indication: ARTHRALGIA
     Route: 048
     Dates: end: 20010101

REACTIONS (1)
  - CEREBROVASCULAR ACCIDENT [None]
